FAERS Safety Report 10431422 (Version 4)
Quarter: 2015Q1

REPORT INFORMATION
  Report Type: Spontaneous
  Country: US (occurrence: US)
  Receive Date: 20140904
  Receipt Date: 20150217
  Transmission Date: 20150720
  Serious: Yes (Hospitalization, Disabling, Other)
  Sender: FDA-Public Use
  Company Number: US-LUNDBECK-DKLU1103105

PATIENT
  Sex: Female
  Weight: 82 kg

DRUGS (6)
  1. SABRIL [Suspect]
     Active Substance: VIGABATRIN
     Indication: SEIZURE
     Route: 048
     Dates: start: 20091022, end: 201408
  2. SABRIL [Suspect]
     Active Substance: VIGABATRIN
     Route: 048
  3. SABRIL [Suspect]
     Active Substance: VIGABATRIN
     Indication: COMPLEX PARTIAL SEIZURES
     Dosage: DECREASED
     Route: 048
     Dates: start: 201309, end: 201408
  4. KEPPRA [Concomitant]
     Active Substance: LEVETIRACETAM
     Indication: PRODUCT USED FOR UNKNOWN INDICATION
  5. FELBATOL [Concomitant]
     Active Substance: FELBAMATE
     Indication: PRODUCT USED FOR UNKNOWN INDICATION
  6. SABRIL [Suspect]
     Active Substance: VIGABATRIN
     Route: 048
     Dates: start: 201408, end: 20150209

REACTIONS (14)
  - Neuropathy peripheral [Unknown]
  - Pneumonia [Recovering/Resolving]
  - Weight increased [Unknown]
  - Tunnel vision [Unknown]
  - Visual acuity reduced [Not Recovered/Not Resolved]
  - Gastrooesophageal reflux disease [Unknown]
  - Mental disorder [Unknown]
  - Seizure [Unknown]
  - Head injury [Unknown]
  - Gout [Unknown]
  - Constipation [Unknown]
  - Visual field defect [Unknown]
  - Fall [Unknown]
  - Migraine [Unknown]

NARRATIVE: CASE EVENT DATE: 2014
